FAERS Safety Report 6334763-5 (Version None)
Quarter: 2009Q3

REPORT INFORMATION
  Report Type: 
  Country: None (occurrence: None)
  Receive Date: 20090831
  Receipt Date: 20090820
  Transmission Date: 20100115
  Serious: Yes (Other)
  Sender: FDA-Public Use
  Company Number: PHHY2009US35290

PATIENT
  Age: 72 Year
  Sex: Female

DRUGS (1)
  1. PAMIDRONATE DISODIUM [Suspect]

REACTIONS (7)
  - BONE DISORDER [None]
  - DEBRIDEMENT [None]
  - FISTULA [None]
  - OSTEONECROSIS [None]
  - PAIN [None]
  - PURULENCE [None]
  - RESORPTION BONE INCREASED [None]
